FAERS Safety Report 26051499 (Version 2)
Quarter: 2025Q4

REPORT INFORMATION
  Report Type: Spontaneous
  Country: CA (occurrence: CA)
  Receive Date: 20251117
  Receipt Date: 20251230
  Transmission Date: 20260118
  Serious: Yes (Life-Threatening, Other)
  Sender: TAKEDA
  Company Number: CA-TAKEDA-2025TUS101686

PATIENT
  Sex: Female

DRUGS (1)
  1. GAMMAGARD LIQUID [Suspect]
     Active Substance: HUMAN IMMUNOGLOBULIN G
     Indication: Product used for unknown indication
     Dosage: 100 MILLILITER
     Dates: start: 20250701, end: 20250701

REACTIONS (9)
  - Agitation [Unknown]
  - Anxiety [Unknown]
  - Chills [Unknown]
  - Dyspnoea [Unknown]
  - Febrile nonhaemolytic transfusion reaction [Unknown]
  - Hypoxia [Unknown]
  - Pyrexia [Unknown]
  - Tachycardia [Unknown]
  - Transfusion-associated dyspnoea [Unknown]

NARRATIVE: CASE EVENT DATE: 20250701
